FAERS Safety Report 12968105 (Version 4)
Quarter: 2017Q1

REPORT INFORMATION
  Report Type: Report from Study
  Country: US (occurrence: US)
  Receive Date: 20161123
  Receipt Date: 20170109
  Transmission Date: 20170428
  Serious: Yes (Other)
  Sender: FDA-Public Use
  Company Number: US-MALLINCKRODT-T201605923

PATIENT
  Age: 44 Year
  Sex: Female
  Weight: 69 kg

DRUGS (5)
  1. REPOSITORY CORTICOTROPIN INJECTION [Suspect]
     Active Substance: CORTICOTROPIN
     Indication: SYSTEMIC LUPUS ERYTHEMATOSUS
     Dosage: 40 UNITS; EVERY 3 DAYS ^DEPENDING ON SYMPTOMS^
     Route: 058
     Dates: start: 2016
  2. REPOSITORY CORTICOTROPIN INJECTION [Suspect]
     Active Substance: CORTICOTROPIN
     Dosage: 40 UNITS EVERY OTHER DAY
     Route: 058
     Dates: start: 20161115, end: 2016
  3. REPOSITORY CORTICOTROPIN INJECTION [Suspect]
     Active Substance: CORTICOTROPIN
     Dosage: 80 UNITS/ML 1/4 ML EVERY OTHER DAY
     Route: 065
  4. PREDNISONE. [Concomitant]
     Active Substance: PREDNISONE
  5. REPOSITORY CORTICOTROPIN INJECTION [Suspect]
     Active Substance: CORTICOTROPIN
     Indication: RHEUMATOID ARTHRITIS
     Dosage: 1 ML EVERY OTHER DAY
     Route: 065
     Dates: start: 20150915

REACTIONS (8)
  - Fluid retention [Unknown]
  - Weight increased [Not Recovered/Not Resolved]
  - Systemic lupus erythematosus [Not Recovered/Not Resolved]
  - Peripheral swelling [Unknown]
  - Drug administration error [Unknown]
  - Drug dose omission [Recovered/Resolved]
  - Swelling face [Unknown]
  - Hepatic enzyme increased [Unknown]

NARRATIVE: CASE EVENT DATE: 2016
